FAERS Safety Report 23607826 (Version 5)
Quarter: 2024Q3

REPORT INFORMATION
  Report Type: Spontaneous
  Country: US (occurrence: US)
  Receive Date: 20240307
  Receipt Date: 20240731
  Transmission Date: 20241017
  Serious: Yes (Other)
  Sender: BRISTOL MYERS SQUIBB
  Company Number: US-BRISTOL-MYERS SQUIBB COMPANY-2024-036960

PATIENT
  Age: 73 Year
  Sex: Male
  Weight: 92.08 kg

DRUGS (15)
  1. REVLIMID [Suspect]
     Active Substance: LENALIDOMIDE
     Indication: Plasma cell myeloma
     Route: 048
     Dates: start: 20240208
  2. REVLIMID [Suspect]
     Active Substance: LENALIDOMIDE
     Route: 048
     Dates: start: 20240307
  3. REVLIMID [Suspect]
     Active Substance: LENALIDOMIDE
     Dosage: DAILY
     Route: 048
     Dates: end: 20240721
  4. VELCADE [Suspect]
     Active Substance: BORTEZOMIB
     Indication: Product used for unknown indication
     Dosage: 1 VIAL
  5. ACYCLOVIR [Concomitant]
     Active Substance: ACYCLOVIR
     Indication: Product used for unknown indication
  6. AMLODIPINE BESYLATE [Concomitant]
     Active Substance: AMLODIPINE BESYLATE
     Indication: Product used for unknown indication
  7. ASPIRIN [Concomitant]
     Active Substance: ASPIRIN
     Indication: Product used for unknown indication
     Dosage: LOW DOSE
  8. DEXAMETHASONE [Concomitant]
     Active Substance: DEXAMETHASONE
     Indication: Product used for unknown indication
  9. LISINOPRIL AND HYDROCHLOROTHIAZIDE [Concomitant]
     Active Substance: HYDROCHLOROTHIAZIDE\LISINOPRIL
     Indication: Product used for unknown indication
  10. METOPROLOL SUCCINATE [Concomitant]
     Active Substance: METOPROLOL SUCCINATE
     Indication: Product used for unknown indication
     Dosage: ER
  11. VITAMINS NOS [Concomitant]
     Active Substance: VITAMINS
     Indication: Product used for unknown indication
  12. ONDANSETRON [Concomitant]
     Active Substance: ONDANSETRON
     Indication: Product used for unknown indication
  13. ROSUVASTATIN [Concomitant]
     Active Substance: ROSUVASTATIN\ROSUVASTATIN CALCIUM
     Indication: Product used for unknown indication
  14. TADALAFIL [Concomitant]
     Active Substance: TADALAFIL
     Indication: Product used for unknown indication
  15. TAMSULOSIN [Concomitant]
     Active Substance: TAMSULOSIN
     Indication: Product used for unknown indication

REACTIONS (11)
  - Gastrooesophageal reflux disease [Recovered/Resolved]
  - Infusion related reaction [Unknown]
  - Fatigue [Not Recovered/Not Resolved]
  - Paraesthesia [Unknown]
  - Hypoaesthesia [Unknown]
  - Balance disorder [Not Recovered/Not Resolved]
  - Upper respiratory tract infection [Recovered/Resolved]
  - Neuropathy peripheral [Not Recovered/Not Resolved]
  - Oedema peripheral [Unknown]
  - Fall [Unknown]
  - Quality of life decreased [Recovered/Resolved]

NARRATIVE: CASE EVENT DATE: 20240101
